FAERS Safety Report 17906019 (Version 1)
Quarter: 2020Q2

REPORT INFORMATION
  Report Type: Spontaneous
  Country: US (occurrence: US)
  Receive Date: 20200616
  Receipt Date: 20200616
  Transmission Date: 20200714
  Serious: No
  Sender: FDA-Public Use
  Company Number: US-ROCHE-2479815

PATIENT
  Age: 83 Year
  Sex: Female
  Weight: 58.11 kg

DRUGS (1)
  1. ACTEMRA [Suspect]
     Active Substance: TOCILIZUMAB
     Indication: RHEUMATOID ARTHRITIS
     Dosage: RECEIVES ACTEMRA ONCE EVERY OTHER WEEK ;ONGOING: YES
     Route: 058

REACTIONS (3)
  - Burning sensation [Recovered/Resolved]
  - Injection site bruising [Recovered/Resolved]
  - International normalised ratio increased [Unknown]

NARRATIVE: CASE EVENT DATE: 201911
